FAERS Safety Report 23896274 (Version 1)
Quarter: 2024Q2

REPORT INFORMATION
  Report Type: Spontaneous
  Country: US (occurrence: None)
  Receive Date: 20240523
  Receipt Date: 20240523
  Transmission Date: 20240715
  Serious: Yes (Other)
  Sender: FDA-Public Use
  Company Number: None

PATIENT
  Age: 63 Year
  Sex: Male

DRUGS (2)
  1. TEMOZOLOMIDE [Suspect]
     Active Substance: TEMOZOLOMIDE
     Indication: Soft tissue sarcoma
     Dosage: FREQUENCY : DAILY;?
  2. TEMOZOLOMIDE [Suspect]
     Active Substance: TEMOZOLOMIDE

REACTIONS (2)
  - Drug ineffective [None]
  - Therapy change [None]
